FAERS Safety Report 25809566 (Version 1)
Quarter: 2025Q3

REPORT INFORMATION
  Report Type: Spontaneous
  Country: US (occurrence: US)
  Receive Date: 20250916
  Receipt Date: 20250916
  Transmission Date: 20251021
  Serious: No
  Sender: SANOFI AVENTIS
  Company Number: US-SANOFI-02651747

PATIENT
  Age: 86 Year
  Sex: Male

DRUGS (1)
  1. LANTUS SOLOSTAR [Suspect]
     Active Substance: INSULIN GLARGINE
     Indication: Type 2 diabetes mellitus
     Dosage: 15 TO 20 UNITS AT NIGHT, HE TAKES THE MEDICATION 20 UNITS WHEN HIS BLOOD SUGAR IS HIGH AND 15 UNITS
     Route: 058

REACTIONS (1)
  - Blood glucose increased [Unknown]
